FAERS Safety Report 8881897 (Version 1)
Quarter: 2012Q4

REPORT INFORMATION
  Report Type: 
  Country: US (occurrence: US)
  Receive Date: 20121101
  Receipt Date: 20121101
  Transmission Date: 20130627
  Serious: Yes (Death)
  Sender: FDA-Public Use
  Company Number: US-ASTRAZENECA-2012SE81476

PATIENT
  Age: 67 Year
  Sex: Male

DRUGS (2)
  1. SYMBICORT PMDI [Suspect]
     Route: 055
  2. CRESTOR [Suspect]
     Route: 048

REACTIONS (3)
  - Pneumonia [Fatal]
  - Myelodysplastic syndrome [Fatal]
  - Respiratory tract infection fungal [Fatal]
